FAERS Safety Report 7766786-3 (Version None)
Quarter: 2011Q3

REPORT INFORMATION
  Report Type: 
  Country: None (occurrence: None)
  Receive Date: 20110922
  Receipt Date: 20110104
  Transmission Date: 20111222
  Serious: No
  Sender: FDA-Public Use
  Company Number: US-ASTRAZENECA-2011SE00430

PATIENT
  Age: 22 Year
  Sex: Male
  Weight: 122.5 kg

DRUGS (8)
  1. XANAX [Concomitant]
  2. SEROQUEL [Suspect]
     Route: 048
     Dates: start: 20100101
  3. SEROQUEL [Suspect]
     Indication: BIPOLAR DISORDER
     Route: 048
     Dates: start: 20090101
  4. SEROQUEL [Suspect]
     Indication: DEPRESSION
     Route: 048
     Dates: start: 20090101
  5. DEPAKOTE [Concomitant]
  6. SEROQUEL [Suspect]
     Indication: ANGER
     Route: 048
     Dates: start: 20090101
  7. SEROQUEL [Suspect]
     Route: 048
     Dates: start: 20100101
  8. SEROQUEL [Suspect]
     Route: 048
     Dates: start: 20100101

REACTIONS (6)
  - THERAPEUTIC RESPONSE UNEXPECTED [None]
  - TACHYPHRENIA [None]
  - AMNESIA [None]
  - AGITATION [None]
  - DRUG DOSE OMISSION [None]
  - SLEEP DISORDER [None]
